FAERS Safety Report 8822170 (Version 3)
Quarter: 2012Q4

REPORT INFORMATION
  Report Type: 
  Country: US (occurrence: US)
  Receive Date: 20121003
  Receipt Date: 20121129
  Transmission Date: 20130627
  Serious: Yes (Hospitalization, Other)
  Sender: FDA-Public Use
  Company Number: US-009507513-1209USA002082

PATIENT
  Age: 49 None
  Sex: Male

DRUGS (3)
  1. PEGINTRON [Suspect]
     Indication: HEPATITIS C
     Dosage: REDIPEN
     Dates: start: 20120602, end: 20121109
  2. REBETOL [Suspect]
     Indication: HEPATITIS C
     Dosage: UNK
     Dates: start: 20120602, end: 20121109
  3. TELAPREVIR [Suspect]
     Indication: HEPATITIS C
     Dosage: UNK
     Dates: start: 20120602, end: 20120828

REACTIONS (6)
  - Surgery [Unknown]
  - Infection [Unknown]
  - Memory impairment [Unknown]
  - Apathy [Unknown]
  - Fatigue [Unknown]
  - Infection [Unknown]
